FAERS Safety Report 8581378-4 (Version None)
Quarter: 2012Q3

REPORT INFORMATION
  Report Type: 
  Country: None (occurrence: None)
  Receive Date: 20120809
  Receipt Date: 20120801
  Transmission Date: 20120928
  Serious: Yes (Hospitalization)
  Sender: FDA-Public Use
  Company Number: US-BAYER-2012-079017

PATIENT
  Age: 19 Year
  Sex: Female

DRUGS (2)
  1. DES [Concomitant]
     Indication: CONTRACEPTION
  2. YAZ [Suspect]
     Dosage: UNK
     Dates: start: 20110101, end: 20110331

REACTIONS (1)
  - PULMONARY EMBOLISM [None]
